FAERS Safety Report 19769119 (Version 1)
Quarter: 2021Q3

REPORT INFORMATION
  Report Type: Report from Study
  Country: MX (occurrence: MX)
  Receive Date: 20210831
  Receipt Date: 20210831
  Transmission Date: 20211014
  Serious: Yes (Death)
  Sender: FDA-Public Use
  Company Number: NVSC2021MX196595

PATIENT
  Age: 51 Year
  Sex: Female
  Weight: 56 kg

DRUGS (1)
  1. REVOLADE [Suspect]
     Active Substance: ELTROMBOPAG OLAMINE
     Indication: PLATELET DISORDER
     Dosage: 1 DF, QD (50 MG)
     Route: 065
     Dates: start: 20210620, end: 20210630

REACTIONS (1)
  - Death [Fatal]

NARRATIVE: CASE EVENT DATE: 20210818
